FAERS Safety Report 24008929 (Version 1)
Quarter: 2024Q2

REPORT INFORMATION
  Report Type: Spontaneous
  Country: FR (occurrence: FR)
  Receive Date: 20240625
  Receipt Date: 20240625
  Transmission Date: 20240716
  Serious: Yes (Disabling)
  Sender: FDA-Public Use
  Company Number: FR-BIOGARAN-B24001053

PATIENT
  Age: 77 Year
  Sex: Female

DRUGS (1)
  1. PREGABALIN [Suspect]
     Active Substance: PREGABALIN
     Indication: Product used for unknown indication
     Dosage: UNK (2 TABLETS)
     Route: 065

REACTIONS (12)
  - Gait disturbance [Unknown]
  - Visual impairment [Unknown]
  - Paraesthesia [Unknown]
  - Arthralgia [Unknown]
  - Muscle twitching [Unknown]
  - Pain in extremity [Unknown]
  - Fall [Unknown]
  - Thermal burn [Unknown]
  - Hypoaesthesia [Unknown]
  - Mental disorder [Unknown]
  - Dysstasia [Unknown]
  - Fear of falling [Unknown]
